FAERS Safety Report 11060328 (Version 3)
Quarter: 2015Q4

REPORT INFORMATION
  Report Type: Report from Study
  Country: US (occurrence: US)
  Receive Date: 20150423
  Receipt Date: 20151023
  Transmission Date: 20160304
  Serious: No
  Sender: FDA-Public Use
  Company Number: US-AMGEN-USASL2015026173

PATIENT
  Age: 89 Year
  Sex: Male

DRUGS (1)
  1. KYPROLIS [Suspect]
     Active Substance: CARFILZOMIB
     Indication: PLASMA CELL MYELOMA
     Dosage: UNK , TWICE A WEEK
     Route: 042
     Dates: start: 201411, end: 201509

REACTIONS (4)
  - Vision blurred [Unknown]
  - Memory impairment [Unknown]
  - Mobility decreased [Unknown]
  - Visual acuity reduced [Unknown]
